FAERS Safety Report 8090669-5 (Version None)
Quarter: 2012Q1

REPORT INFORMATION
  Report Type: 
  Country: None (occurrence: None)
  Receive Date: 20120129
  Receipt Date: 20111208
  Transmission Date: 20120608
  Serious: No
  Sender: FDA-Public Use
  Company Number: US-ABBOTT-11P-163-0881883-00

PATIENT
  Sex: Female

DRUGS (4)
  1. ASACOL [Concomitant]
     Indication: CROHN'S DISEASE
     Dosage: DAILY
  2. HUMIRA [Suspect]
     Indication: CROHN'S DISEASE
     Route: 058
     Dates: start: 20110401
  3. PREDNISONE TAB [Concomitant]
     Indication: CROHN'S DISEASE
     Dosage: AS NEEDED
  4. ENTOCORT EC [Concomitant]
     Indication: CROHN'S DISEASE
     Dosage: AS NEEDED

REACTIONS (5)
  - DECREASED APPETITE [None]
  - VOMITING [None]
  - SKIN DISCOLOURATION [None]
  - DIARRHOEA [None]
  - CROHN'S DISEASE [None]
